FAERS Safety Report 9707435 (Version 1)
Quarter: 2013Q4

REPORT INFORMATION
  Report Type: Spontaneous
  Country: ES (occurrence: ES)
  Receive Date: 20131125
  Receipt Date: 20131125
  Transmission Date: 20140711
  Serious: Yes (Hospitalization, Congenital Anomaly)
  Sender: FDA-Public Use
  Company Number: ES-MYLANLABS-2013S1025935

PATIENT
  Sex: Male

DRUGS (1)
  1. VALPROIC ACID [Suspect]
     Indication: PETIT MAL EPILEPSY
     Dosage: 1200 MG/DAY
     Route: 064

REACTIONS (6)
  - Factor I deficiency [Recovered/Resolved]
  - Hypoglycaemia neonatal [Recovered/Resolved]
  - Coagulation factor decreased [Recovered/Resolved]
  - Foetal exposure during pregnancy [Recovered/Resolved]
  - Atrial septal defect [Unknown]
  - Drug withdrawal syndrome [Recovered/Resolved]
